FAERS Safety Report 10301600 (Version 1)
Quarter: 2014Q3

REPORT INFORMATION
  Report Type: Spontaneous
  Country: FR (occurrence: FR)
  Receive Date: 20140714
  Receipt Date: 20140714
  Transmission Date: 20150326
  Serious: Yes (Death)
  Sender: FDA-Public Use
  Company Number: FR-SA-2014SA091710

PATIENT
  Age: 89 Year
  Sex: Male

DRUGS (8)
  1. OROCAL [Concomitant]
     Active Substance: CALCIUM CARBONATE
     Route: 048
  2. AMIODARONE [Suspect]
     Active Substance: AMIODARONE
     Indication: PRODUCT USED FOR UNKNOWN INDICATION
     Dosage: 1DF DAILY, 5 DAYS WEEKLY
     Route: 048
  3. SPIRONOLACTONE. [Suspect]
     Active Substance: SPIRONOLACTONE
     Indication: PRODUCT USED FOR UNKNOWN INDICATION
     Route: 048
  4. ALFUZOSIN HYDROCHLORIDE. [Suspect]
     Active Substance: ALFUZOSIN HYDROCHLORIDE
     Indication: PRODUCT USED FOR UNKNOWN INDICATION
     Route: 048
  5. THERAPEUTIC RADIOPHARMACEUTICALS [Concomitant]
     Active Substance: RADIATION THERAPY
     Indication: ANALGESIC THERAPY
     Route: 003
     Dates: start: 201309
  6. SOLUPRED [Suspect]
     Active Substance: PREDNISOLONE
     Indication: PRODUCT USED FOR UNKNOWN INDICATION
     Route: 048
  7. FUROSEMIDE. [Suspect]
     Active Substance: FUROSEMIDE
     Indication: PRODUCT USED FOR UNKNOWN INDICATION
     Route: 048
  8. ZYTIGA [Suspect]
     Active Substance: ABIRATERONE ACETATE
     Indication: PRODUCT USED FOR UNKNOWN INDICATION
     Route: 065

REACTIONS (1)
  - Pancreatitis necrotising [Fatal]

NARRATIVE: CASE EVENT DATE: 20140217
